FAERS Safety Report 20601949 (Version 5)
Quarter: 2022Q3

REPORT INFORMATION
  Report Type: Spontaneous
  Country: US (occurrence: US)
  Receive Date: 20220316
  Receipt Date: 20220930
  Transmission Date: 20221027
  Serious: Yes (Other)
  Sender: FDA-Public Use
  Company Number: US-SK LIFE SCIENCE, INC-SKPVG-2022-000014

PATIENT

DRUGS (15)
  1. XCOPRI [Suspect]
     Active Substance: CENOBAMATE
     Indication: Epilepsy
     Dosage: 12.5 MILLIGRAM
     Route: 065
     Dates: start: 20201215, end: 20201228
  2. XCOPRI [Suspect]
     Active Substance: CENOBAMATE
     Indication: Temporal lobe epilepsy
     Dosage: 25 MILLIGRAM
     Route: 065
     Dates: start: 20201229, end: 20210111
  3. XCOPRI [Suspect]
     Active Substance: CENOBAMATE
     Dosage: 50 MILLIGRAM
     Route: 065
     Dates: start: 20210112, end: 20210125
  4. XCOPRI [Suspect]
     Active Substance: CENOBAMATE
     Dosage: 100 MILLIGRAM, QD
     Route: 065
     Dates: start: 20210126
  5. XCOPRI [Suspect]
     Active Substance: CENOBAMATE
     Dosage: 100MG SPILT IN HALF
     Route: 065
     Dates: start: 20220208, end: 20220220
  6. XCOPRI [Suspect]
     Active Substance: CENOBAMATE
     Dosage: 100 MILLIGRAM, QD
     Route: 065
     Dates: start: 20220223
  7. CLOBAZAM [Concomitant]
     Active Substance: CLOBAZAM
     Indication: Seizure
     Dosage: 20MG 2X DAILY
     Route: 065
     Dates: start: 20190210, end: 20200219
  8. CLOBAZAM [Concomitant]
     Active Substance: CLOBAZAM
     Indication: Epilepsy
     Dosage: 30MG 2X DAILY
     Route: 065
     Dates: start: 20200220, end: 20220220
  9. CLOBAZAM [Concomitant]
     Active Substance: CLOBAZAM
     Dosage: 15MG 2X DAILY
     Route: 065
     Dates: start: 20220220, end: 20220420
  10. CLOBAZAM [Concomitant]
     Active Substance: CLOBAZAM
     Dosage: 10MG 2X DAILY
     Route: 065
     Dates: start: 20220420
  11. CLOBAZAM [Concomitant]
     Active Substance: CLOBAZAM
     Dosage: 30 MILLIGRAM, BID
     Route: 065
     Dates: start: 20210211, end: 20210811
  12. CLOBAZAM [Concomitant]
     Active Substance: CLOBAZAM
     Dosage: 20 MILLIGRAM, BID
     Route: 065
     Dates: start: 20210212, end: 20220419
  13. CLOBAZAM [Concomitant]
     Active Substance: CLOBAZAM
     Dosage: 10 MILLIGRAM, BID
     Route: 065
     Dates: start: 20220420
  14. EPIDIOLEX [Concomitant]
     Active Substance: CANNABIDIOL
     Indication: Product used for unknown indication
     Dosage: 100 MILLILITER, BID
     Route: 065
     Dates: start: 20200208, end: 20200908
  15. KEPPRA [Concomitant]
     Active Substance: LEVETIRACETAM
     Indication: Product used for unknown indication
     Dosage: UNK
     Route: 065
     Dates: start: 2015, end: 20200208

REACTIONS (7)
  - Cataract [Unknown]
  - Mass [Not Recovered/Not Resolved]
  - Product availability issue [Recovered/Resolved]
  - Product dose omission issue [Recovered/Resolved]
  - Wrong technique in product usage process [Recovered/Resolved]
  - Gingival recession [Unknown]
  - Diplopia [Not Recovered/Not Resolved]

NARRATIVE: CASE EVENT DATE: 20210701
